FAERS Safety Report 18664919 (Version 1)
Quarter: 2020Q4

REPORT INFORMATION
  Report Type: Spontaneous
  Country: GB (occurrence: GB)
  Receive Date: 20201225
  Receipt Date: 20201225
  Transmission Date: 20210114
  Serious: Yes (Disabling, Other)
  Sender: FDA-Public Use
  Company Number: GB-TEVA-2020-GB-1860849

PATIENT
  Age: 44 Year
  Sex: Female
  Weight: 62 kg

DRUGS (7)
  1. VARENICLINE [Concomitant]
     Active Substance: VARENICLINE
     Dosage: AS DIRECTED
     Dates: start: 20201118
  2. INFLUVAC SUB-UNIT TETRA [Concomitant]
     Dosage: AS DIRECTED
     Dates: start: 20201107, end: 20201108
  3. FERROUS FUMARATE [Concomitant]
     Active Substance: FERROUS FUMARATE
     Dosage: UNIT DOSE : 3 DOSAGE FORMS
     Dates: start: 20180622
  4. FLUTICASONE FUROATE [Concomitant]
     Active Substance: FLUTICASONE FUROATE
     Dosage: UNIT DOSE : 1 DOSAGE FORMS
     Dates: start: 20140325
  5. LAMOTRIGINE. [Concomitant]
     Active Substance: LAMOTRIGINE
     Dosage: AS DIRECTED BY NEUROLOGISTS UP TO A TOTAL O...
     Dates: start: 20130226, end: 20201009
  6. PROCHLORPERAZINE. [Concomitant]
     Active Substance: PROCHLORPERAZINE
     Dosage: UNIT DOSE : 3 DOSAGE FORMS
     Dates: start: 20201001, end: 20201029
  7. DOXYCYCLINE. [Suspect]
     Active Substance: DOXYCYCLINE
     Dosage: TWO NOW THEN ONE DAILY
     Dates: start: 20201118

REACTIONS (2)
  - Tremor [Recovered/Resolved]
  - Nausea [Unknown]
